FAERS Safety Report 7401723-2 (Version None)
Quarter: 2011Q1

REPORT INFORMATION
  Report Type: 
  Country: None (occurrence: None)
  Receive Date: 20110301
  Receipt Date: 20100630
  Transmission Date: 20110831
  Serious: Yes (Other)
  Sender: FDA-Public Use
  Company Number: US-JNJFOC-20100507266

PATIENT
  Age: 49 Year
  Sex: Female
  Weight: 74.8435 kg

DRUGS (6)
  1. TOPROL-XL [Concomitant]
  2. MOTRIN [Suspect]
     Indication: PRODUCT USED FOR UNKNOWN INDICATION
  3. CHANTIX [Concomitant]
  4. LIPITOR [Concomitant]
  5. LORTAB (VICODIN) [Concomitant]
  6. KLONOPIN [Concomitant]

REACTIONS (1)
  - HYPERSENSITIVITY [None]
